FAERS Safety Report 20330960 (Version 1)
Quarter: 2022Q1

REPORT INFORMATION
  Report Type: Other
  Country: None (occurrence: US)
  Receive Date: 20220113
  Receipt Date: 20220113
  Transmission Date: 20220423
  Serious: Yes (Other)
  Sender: FDA-Public Use
  Company Number: US-CHEMI SPA-2123888

PATIENT
  Age: 68 Year
  Sex: Male

DRUGS (2)
  1. TEMOZOLOMIDE [Suspect]
     Active Substance: TEMOZOLOMIDE
     Route: 048
  2. NIVOLUMAB [Concomitant]
     Active Substance: NIVOLUMAB
     Route: 042

REACTIONS (6)
  - Off label use [Unknown]
  - Lymphopenia [Unknown]
  - Rash [Unknown]
  - Weight decreased [Unknown]
  - Presyncope [Unknown]
  - Thrombocytopenia [Unknown]
